FAERS Safety Report 8015870-8 (Version None)
Quarter: 2011Q4

REPORT INFORMATION
  Report Type: 
  Country: None (occurrence: None)
  Receive Date: 20111223
  Receipt Date: 20111215
  Transmission Date: 20120403
  Serious: Yes (Hospitalization)
  Sender: FDA-Public Use
  Company Number: MSTR-NO-1112S-0271

PATIENT
  Age: 60 Year
  Sex: Male

DRUGS (1)
  1. METASTRON [Suspect]
     Indication: PRODUCT USED FOR UNKNOWN INDICATION
     Dosage: SINGLE DOSE, INTRAVENOUS
     Route: 042
     Dates: start: 20111025, end: 20111025

REACTIONS (5)
  - LARGE INTESTINAL HAEMORRHAGE [None]
  - HAEMOGLOBIN DECREASED [None]
  - COLON NEOPLASM [None]
  - PLATELET COUNT DECREASED [None]
  - RECTAL HAEMORRHAGE [None]
